FAERS Safety Report 5362233-X (Version None)
Quarter: 2007Q2

REPORT INFORMATION
  Report Type: 
  Country: None (occurrence: None)
  Receive Date: 20070619
  Receipt Date: 20070611
  Transmission Date: 20071010
  Serious: Yes (Other)
  Sender: FDA-Public Use
  Company Number: FR-BRISTOL-MYERS SQUIBB COMPANY-13812532

PATIENT
  Age: 44 Year
  Sex: Female

DRUGS (6)
  1. REYATAZ [Suspect]
     Indication: HIV TEST POSITIVE
     Route: 048
     Dates: start: 20050601, end: 20061201
  2. NELFINAVIR [Concomitant]
     Indication: HIV INFECTION
     Dates: start: 20030101, end: 20050101
  3. LAMIVUDINE [Concomitant]
     Indication: HIV INFECTION
     Dates: start: 20050601, end: 20061201
  4. ABACAVIR [Concomitant]
     Dates: start: 20050601, end: 20061201
  5. RITONAVIR [Concomitant]
     Dates: start: 20050601, end: 20061201
  6. DEROXAT [Concomitant]
     Dates: start: 20030101, end: 20050101

REACTIONS (1)
  - ENCEPHALITIS [None]
